FAERS Safety Report 10301111 (Version 1)
Quarter: 2014Q3

REPORT INFORMATION
  Report Type: Spontaneous
  Country: US (occurrence: None)
  Receive Date: 20140708
  Receipt Date: 20140708
  Transmission Date: 20150326
  Serious: No
  Sender: FDA-Public Use
  Company Number: None

PATIENT
  Age: 47 Year
  Sex: Female
  Weight: 79 kg

DRUGS (1)
  1. ASTAGRAF XL [Suspect]
     Active Substance: TACROLIMUS
     Indication: PROPHYLAXIS AGAINST TRANSPLANT REJECTION
     Dosage: 6 MG  QD  ORAL
     Route: 048
     Dates: start: 20140626, end: 20140707

REACTIONS (2)
  - Product label confusion [None]
  - Incorrect dose administered [None]

NARRATIVE: CASE EVENT DATE: 20140707
